FAERS Safety Report 8820982 (Version 3)
Quarter: 2018Q4

REPORT INFORMATION
  Report Type: Spontaneous
  Country: FR (occurrence: FR)
  Receive Date: 20121002
  Receipt Date: 20181109
  Transmission Date: 20190205
  Serious: Yes (Other)
  Sender: FDA-Public Use
  Company Number: FR-009507513-1209FRA009969

PATIENT
  Age: 39 Year
  Sex: Female
  Weight: 43 kg

DRUGS (6)
  1. TALOXA [Suspect]
     Active Substance: FELBAMATE
     Dosage: 600 MG, BID
     Route: 048
     Dates: start: 20120812
  2. TALOXA [Suspect]
     Active Substance: FELBAMATE
     Dosage: 1200 MG BID
     Dates: start: 201207, end: 201208
  3. ZONEGRAN [Concomitant]
     Active Substance: ZONISAMIDE
     Indication: PRODUCT USED FOR UNKNOWN INDICATION
     Dosage: UNK
     Dates: start: 2006
  4. DEPAKINE [Concomitant]
     Active Substance: VALPROATE SODIUM
     Indication: PRODUCT USED FOR UNKNOWN INDICATION
  5. DEPAKINE [Concomitant]
     Active Substance: VALPROATE SODIUM
  6. ALEPSAL (CAFFEINE (+) PHENOBARBITAL) [Concomitant]
     Active Substance: CAFFEINE\PHENOBARBITAL
     Indication: PRODUCT USED FOR UNKNOWN INDICATION
     Dosage: UNK

REACTIONS (8)
  - Decreased appetite [Recovered/Resolved]
  - Asthenia [Unknown]
  - Balance disorder [Recovered/Resolved]
  - Nausea [Unknown]
  - Vertigo [Unknown]
  - Somnolence [Recovered/Resolved]
  - Dysarthria [Recovered/Resolved]
  - Weight decreased [Recovered/Resolved]

NARRATIVE: CASE EVENT DATE: 201208
